FAERS Safety Report 25790515 (Version 1)
Quarter: 2025Q3

REPORT INFORMATION
  Report Type: Report from Study
  Country: CA (occurrence: CA)
  Receive Date: 20250911
  Receipt Date: 20250911
  Transmission Date: 20251020
  Serious: Yes (Other)
  Sender: CELLTRION
  Company Number: CA-CELLTRION INC.-2025CA032159

PATIENT

DRUGS (14)
  1. RITUXIMAB [Suspect]
     Active Substance: RITUXIMAB
     Indication: Rheumatoid arthritis
     Route: 042
  2. RITUXIMAB [Suspect]
     Active Substance: RITUXIMAB
     Route: 042
  3. RITUXIMAB [Suspect]
     Active Substance: RITUXIMAB
     Route: 042
  4. RITUXIMAB [Suspect]
     Active Substance: RITUXIMAB
     Route: 042
  5. BENADRYL [Suspect]
     Active Substance: DIPHENHYDRAMINE HYDROCHLORIDE
     Indication: Pruritus
     Route: 048
  6. BENADRYL [Suspect]
     Active Substance: DIPHENHYDRAMINE HYDROCHLORIDE
     Indication: Pruritus
     Route: 042
  7. METHOTREXATE [Suspect]
     Active Substance: METHOTREXATE
     Indication: Product used for unknown indication
     Route: 065
  8. METHYLPREDNISOLONE SODIUM SUCCINATE [Suspect]
     Active Substance: METHYLPREDNISOLONE SODIUM SUCCINATE
     Indication: Product used for unknown indication
     Route: 042
  9. MINOCYCLINE [Suspect]
     Active Substance: MINOCYCLINE HYDROCHLORIDE
     Indication: Product used for unknown indication
     Route: 065
  10. SOLU-CORTEF [Suspect]
     Active Substance: HYDROCORTISONE SODIUM SUCCINATE
     Indication: Pruritus
     Route: 042
  11. TYLENOL [Suspect]
     Active Substance: ACETAMINOPHEN
     Indication: Product used for unknown indication
     Route: 048
  12. ACETAMINOPHEN [Concomitant]
     Active Substance: ACETAMINOPHEN
     Indication: Product used for unknown indication
     Route: 048
  13. DIPHENHYDRAMINE [Concomitant]
     Active Substance: DIPHENHYDRAMINE
     Indication: Product used for unknown indication
     Route: 048
  14. METHYLPREDNISOLONE [Concomitant]
     Active Substance: METHYLPREDNISOLONE
     Indication: Product used for unknown indication
     Route: 042

REACTIONS (9)
  - Ear pruritus [Recovered/Resolved]
  - Oxygen saturation decreased [Recovered/Resolved]
  - Blood pressure abnormal [Recovered/Resolved]
  - Dyspnoea [Recovered/Resolved]
  - Pruritus [Recovered/Resolved]
  - Throat irritation [Recovered/Resolved]
  - Drug hypersensitivity [Recovered/Resolved]
  - Headache [Recovered/Resolved]
  - Intentional product use issue [Unknown]
